FAERS Safety Report 8123551-5 (Version None)
Quarter: 2012Q1

REPORT INFORMATION
  Report Type: 
  Country: None (occurrence: None)
  Receive Date: 20120208
  Receipt Date: 20120201
  Transmission Date: 20120608
  Serious: Yes (Other)
  Sender: FDA-Public Use
  Company Number: PHHY2012ES008898

PATIENT
  Age: 49 Year

DRUGS (3)
  1. AMITRIPTYLINE HCL [Concomitant]
  2. OXYCODONE HCL [Concomitant]
  3. TRILEPTAL [Suspect]
     Indication: PAIN

REACTIONS (3)
  - RESPIRATORY DISTRESS [None]
  - INTERSTITIAL LUNG DISEASE [None]
  - ORGANISING PNEUMONIA [None]
